FAERS Safety Report 26064850 (Version 1)
Quarter: 2025Q4

REPORT INFORMATION
  Report Type: Spontaneous
  Country: JP (occurrence: JP)
  Receive Date: 20251119
  Receipt Date: 20251119
  Transmission Date: 20260117
  Serious: Yes (Other)
  Sender: NOVARTIS
  Company Number: JP-002147023-NVSC2025JP175418

PATIENT
  Age: 37 Year
  Sex: Male

DRUGS (8)
  1. IMATINIB [Suspect]
     Active Substance: IMATINIB
     Indication: Chronic myeloid leukaemia
     Dosage: 200 MG, QD
     Route: 065
     Dates: start: 201808, end: 201903
  2. IMATINIB [Suspect]
     Active Substance: IMATINIB
     Dosage: 300 MG, QD
     Route: 065
     Dates: start: 201808, end: 201903
  3. NILOTINIB [Suspect]
     Active Substance: NILOTINIB
     Indication: Chronic myeloid leukaemia
     Dosage: 300 MG, BID
     Route: 065
     Dates: start: 202008, end: 202506
  4. BOSUTINIB [Suspect]
     Active Substance: BOSUTINIB
     Indication: Chronic myeloid leukaemia
     Dosage: 100 MG, QD
     Route: 065
  5. BOSUTINIB [Suspect]
     Active Substance: BOSUTINIB
     Dosage: 400 MG, QD
     Route: 065
  6. BOSUTINIB [Suspect]
     Active Substance: BOSUTINIB
     Dosage: 300 MG, QD
     Route: 065
  7. BOSUTINIB [Suspect]
     Active Substance: BOSUTINIB
     Dosage: 100 MG, QD
     Route: 065
  8. BOSUTINIB [Suspect]
     Active Substance: BOSUTINIB
     Dosage: 300 MG
     Route: 065

REACTIONS (8)
  - Atrial fibrillation [Unknown]
  - Cerebral haemorrhage [Unknown]
  - Electrocardiogram QT prolonged [Recovering/Resolving]
  - Arteriosclerosis [Recovering/Resolving]
  - Ankle brachial index decreased [Recovering/Resolving]
  - Hyperlipidaemia [Unknown]
  - Nausea [Unknown]
  - Vomiting [Unknown]
